FAERS Safety Report 8830800 (Version 2)
Quarter: 2012Q4

REPORT INFORMATION
  Report Type: 
  Country: GB (occurrence: GB)
  Receive Date: 20121009
  Receipt Date: 20121016
  Transmission Date: 20130627
  Serious: Yes (Other)
  Sender: FDA-Public Use
  Company Number: GB-JNJFOC-20121002987

PATIENT
  Age: 18 Month
  Sex: Female

DRUGS (2)
  1. CALPOL [Suspect]
     Indication: HEADACHE
     Route: 065
  2. CALPOL [Suspect]
     Indication: OROPHARYNGEAL PAIN
     Route: 065

REACTIONS (5)
  - Asthma [Recovered/Resolved]
  - Scratch [Recovered/Resolved]
  - Insomnia [Recovered/Resolved]
  - Screaming [Recovered/Resolved]
  - Diarrhoea [Not Recovered/Not Resolved]
